FAERS Safety Report 23759677 (Version 1)
Quarter: 2024Q2

REPORT INFORMATION
  Report Type: Spontaneous
  Country: JP (occurrence: JP)
  Receive Date: 20240419
  Receipt Date: 20240419
  Transmission Date: 20240716
  Serious: No
  Sender: FDA-Public Use
  Company Number: JP-WT-2024-JP-024746

PATIENT
  Sex: Male

DRUGS (2)
  1. DUTASTERIDE [Suspect]
     Active Substance: DUTASTERIDE
     Indication: Benign prostatic hyperplasia
     Dosage: 0.5 MG, 1D
     Route: 065
  2. SILODOSIN [Concomitant]
     Active Substance: SILODOSIN
     Route: 065

REACTIONS (1)
  - Prostatic specific antigen increased [Unknown]
